FAERS Safety Report 7015810-4 (Version None)
Quarter: 2010Q3

REPORT INFORMATION
  Report Type: 
  Country: None (occurrence: None)
  Receive Date: 20100927
  Receipt Date: 20100401
  Transmission Date: 20110219
  Serious: No
  Sender: FDA-Public Use
  Company Number: US-ASTRAZENECA-2010SE11097

PATIENT
  Sex: Female

DRUGS (1)
  1. ARIMIDEX [Suspect]
     Route: 048
     Dates: end: 20100303

REACTIONS (4)
  - ASTHENIA [None]
  - BACK PAIN [None]
  - INSOMNIA [None]
  - PERIPHERAL COLDNESS [None]
